FAERS Safety Report 19626360 (Version 2)
Quarter: 2021Q3

REPORT INFORMATION
  Report Type: Report from Study
  Country: US (occurrence: US)
  Receive Date: 20210729
  Receipt Date: 20210805
  Transmission Date: 20211014
  Serious: Yes (Hospitalization)
  Sender: FDA-Public Use
  Company Number: US-INSMED, INC.-2021-08840-US

PATIENT
  Age: 76 Year
  Sex: Female

DRUGS (2)
  1. ARIKAYCE [Suspect]
     Active Substance: AMIKACIN
     Dosage: 590 MILLIGRAM, QD
     Route: 055
     Dates: start: 202107, end: 20210719
  2. ARIKAYCE [Suspect]
     Active Substance: AMIKACIN
     Indication: MYCOBACTERIUM AVIUM COMPLEX INFECTION
     Dosage: 590 MILLIGRAM, A FEW TIMES A WEEK
     Route: 055
     Dates: start: 20210628, end: 20210719

REACTIONS (10)
  - Respiratory tract congestion [Unknown]
  - Throat irritation [Unknown]
  - Chronic obstructive pulmonary disease [Unknown]
  - Dyspnoea [Not Recovered/Not Resolved]
  - Fatigue [Unknown]
  - Product packaging difficult to open [Unknown]
  - Salivary hypersecretion [Recovering/Resolving]
  - Off label use [Unknown]
  - Therapy interrupted [Unknown]
  - Cough [Recovering/Resolving]

NARRATIVE: CASE EVENT DATE: 2021
